FAERS Safety Report 17654226 (Version 2)
Quarter: 2020Q2

REPORT INFORMATION
  Report Type: Spontaneous
  Country: PT (occurrence: PT)
  Receive Date: 20200410
  Receipt Date: 20200415
  Transmission Date: 20200713
  Serious: Yes (Hospitalization, Other)
  Sender: FDA-Public Use
  Company Number: PT-SUN PHARMACEUTICAL INDUSTRIES LTD-2020RR-243500

PATIENT
  Age: 27 Year
  Sex: Female
  Weight: 83 kg

DRUGS (2)
  1. LEVONORGESTREL. [Suspect]
     Active Substance: LEVONORGESTREL
     Indication: PRODUCT USED FOR UNKNOWN INDICATION
     Dosage: 20 MCG/24HR, CONT
     Route: 015
  2. MINOCYCLINE [Suspect]
     Active Substance: MINOCYCLINE HYDROCHLORIDE
     Indication: FOLLICULITIS
     Dosage: 100 MILLIGRAM, BID
     Route: 065

REACTIONS (10)
  - Papilloedema [Unknown]
  - Vitreous haemorrhage [Unknown]
  - Scintillating scotoma [Unknown]
  - Photophobia [Unknown]
  - Tinnitus [Unknown]
  - Phonophobia [Unknown]
  - Dizziness [Unknown]
  - Folliculitis [Unknown]
  - Intracranial pressure increased [Recovered/Resolved]
  - Headache [Unknown]
